FAERS Safety Report 4334066-4 (Version None)
Quarter: 2004Q1

REPORT INFORMATION
  Report Type: 
  Country: None (occurrence: None)
  Receive Date: 20040329
  Receipt Date: 20031217
  Transmission Date: 20041129
  Serious: No
  Sender: FDA-Public Use
  Company Number: 03P-163-0245000-00

PATIENT
  Age: 79 Year
  Sex: Female

DRUGS (13)
  1. HUMIRA [Suspect]
     Indication: RHEUMATOID ARTHRITIS
     Dosage: 40 MG, 1 IN 2 WK, SUBCUTANEOUS
     Route: 058
     Dates: start: 20031101, end: 20031209
  2. INSULIN [Concomitant]
  3. ESTRADIOL [Concomitant]
  4. SERTRALINE HYDROCHLORIDE [Concomitant]
  5. METHYLPREDNISOLONE [Concomitant]
  6. FUROSEMIDE [Concomitant]
  7. POTASSIUM CHLORIDE [Concomitant]
  8. ASPIRIN [Concomitant]
  9. MULTIVITAMIN [Concomitant]
  10. TOCOPHEROL CONCENTRATE CAP [Concomitant]
  11. PRAVASTATIN SODIUM [Concomitant]
  12. ENALAPRIL MALEATE [Concomitant]
  13. TOPROL-XL [Concomitant]

REACTIONS (4)
  - ARTHRALGIA [None]
  - ASTHENIA [None]
  - BLOOD PRESSURE INCREASED [None]
  - NAUSEA [None]
